FAERS Safety Report 7438002-3 (Version None)
Quarter: 2011Q2

REPORT INFORMATION
  Report Type: 
  Country: None (occurrence: None)
  Receive Date: 20110421
  Receipt Date: 20110421
  Transmission Date: 20111010
  Serious: Yes (Life-Threatening, Hospitalization, Disabling)
  Sender: FDA-Public Use
  Company Number: None

PATIENT
  Age: 46 Year
  Sex: Male
  Weight: 128.8216 kg

DRUGS (6)
  1. VENLAFAXINE [Concomitant]
  2. CHANTIX [Suspect]
     Indication: SMOKING CESSATION THERAPY
     Dosage: 1 MG DAILY ORAL 047
     Route: 048
     Dates: start: 20100425, end: 20100713
  3. LISINOPRIL [Concomitant]
  4. SIMVASTATIN [Concomitant]
  5. CHLORTHALID [Concomitant]
  6. ATENOLOL [Suspect]

REACTIONS (6)
  - MEMORY IMPAIRMENT [None]
  - THINKING ABNORMAL [None]
  - SUICIDAL IDEATION [None]
  - DEPRESSION [None]
  - ANXIETY [None]
  - FATIGUE [None]
